FAERS Safety Report 13636576 (Version 1)
Quarter: 2017Q2

REPORT INFORMATION
  Report Type: Spontaneous
  Country: US (occurrence: US)
  Receive Date: 20170531
  Receipt Date: 20170531
  Transmission Date: 20170830
  Serious: No
  Sender: FDA-Public Use
  Company Number: US-ASTELLAS-1834492

PATIENT
  Sex: Female

DRUGS (6)
  1. LOSARTAN POTASSIUM. [Concomitant]
     Active Substance: LOSARTAN POTASSIUM
  2. TARCEVA [Suspect]
     Active Substance: ERLOTINIB HYDROCHLORIDE
     Dosage: 1 TABLET EVERY OTHER DAY
     Route: 048
  3. TARCEVA [Suspect]
     Active Substance: ERLOTINIB HYDROCHLORIDE
     Indication: LUNG NEOPLASM MALIGNANT
     Route: 048
     Dates: start: 20160825
  4. AMLODIPINE [Concomitant]
     Active Substance: AMLODIPINE BESYLATE
  5. MELATONIN [Concomitant]
     Active Substance: MELATONIN
  6. TARCEVA [Suspect]
     Active Substance: ERLOTINIB HYDROCHLORIDE
     Route: 048
     Dates: start: 20160823

REACTIONS (10)
  - Poor quality sleep [Unknown]
  - Rash [Unknown]
  - Irritable bowel syndrome [Unknown]
  - Dry mouth [Unknown]
  - Pollakiuria [Unknown]
  - Diarrhoea [Unknown]
  - Pruritus generalised [Unknown]
  - Dyspepsia [Unknown]
  - Oral pain [Recovering/Resolving]
  - Fatigue [Unknown]
